FAERS Safety Report 16589920 (Version 3)
Quarter: 2019Q4

REPORT INFORMATION
  Report Type: Report from Study
  Country: None (occurrence: US)
  Receive Date: 20190718
  Receipt Date: 20191024
  Transmission Date: 20200122
  Serious: Yes (Hospitalization)
  Sender: FDA-Public Use
  Company Number: US-BIOVITRUM-2019US1865

PATIENT
  Age: 2 Year
  Sex: Female

DRUGS (7)
  1. KINERET [Suspect]
     Active Substance: ANAKINRA
     Indication: STILL^S DISEASE
     Route: 058
  2. KINERET [Suspect]
     Active Substance: ANAKINRA
     Route: 058
  3. CYCLOSPORINE. [Concomitant]
     Active Substance: CYCLOSPORINE
  4. BACTRIM [Concomitant]
     Active Substance: SULFAMETHOXAZOLE\TRIMETHOPRIM
  5. ACYCLOVIR. [Concomitant]
     Active Substance: ACYCLOVIR
  6. PREDNISOLONE. [Concomitant]
     Active Substance: PREDNISOLONE
  7. AZITHROMYCIN ANHYDROUS. [Concomitant]
     Active Substance: AZITHROMYCIN ANHYDROUS

REACTIONS (3)
  - Condition aggravated [Unknown]
  - Haemophagocytic lymphohistiocytosis [Unknown]
  - Off label use [Not Recovered/Not Resolved]

NARRATIVE: CASE EVENT DATE: 20190622
